FAERS Safety Report 17916311 (Version 3)
Quarter: 2020Q4

REPORT INFORMATION
  Report Type: Report from Study
  Country: CA (occurrence: CA)
  Receive Date: 20200619
  Receipt Date: 20201127
  Transmission Date: 20210113
  Serious: Yes (Disabling, Other)
  Sender: FDA-Public Use
  Company Number: CA-HLS-202000421

PATIENT
  Age: 23 Year
  Sex: Male
  Weight: 82 kg

DRUGS (3)
  1. CLOZARIL [Suspect]
     Active Substance: CLOZAPINE
     Indication: SCHIZOPHRENIA
     Dosage: 450MG QHS
     Route: 048
     Dates: start: 20180719
  2. RABEPRAZOLE [Concomitant]
     Active Substance: RABEPRAZOLE
     Route: 065
  3. ABILIFY [Concomitant]
     Active Substance: ARIPIPRAZOLE
     Route: 065
     Dates: start: 20191106, end: 20200603

REACTIONS (8)
  - Heart rate increased [Recovered/Resolved]
  - Myocarditis [Unknown]
  - Ventricular extrasystoles [Unknown]
  - Myocarditis [Unknown]
  - Heart rate increased [Recovered/Resolved]
  - Heart rate decreased [Recovered/Resolved]
  - Blood pressure systolic [Recovered/Resolved]
  - Cardiomyopathy [Unknown]

NARRATIVE: CASE EVENT DATE: 20190110
